FAERS Safety Report 12611920 (Version 5)
Quarter: 2016Q4

REPORT INFORMATION
  Report Type: Report from Study
  Country: JP (occurrence: JP)
  Receive Date: 20160801
  Receipt Date: 20161205
  Transmission Date: 20170207
  Serious: Yes (Death, Hospitalization, Other)
  Sender: FDA-Public Use
  Company Number: JP-JNJFOC-20160725146

PATIENT
  Age: 37 Year
  Sex: Male
  Weight: 69 kg

DRUGS (15)
  1. YONDELIS [Suspect]
     Active Substance: TRABECTEDIN
     Indication: EXTRA-OSSEOUS EWING^S SARCOMA METASTATIC
     Dosage: CYCLE 6
     Route: 042
     Dates: start: 20160609
  2. YONDELIS [Suspect]
     Active Substance: TRABECTEDIN
     Indication: PRIMITIVE NEUROECTODERMAL TUMOUR
     Dosage: OVER 24-HOUR INFUSION, CYCLE 1-3
     Route: 042
     Dates: start: 20160118
  3. YONDELIS [Suspect]
     Active Substance: TRABECTEDIN
     Indication: PRIMITIVE NEUROECTODERMAL TUMOUR
     Dosage: CYCLE 6
     Route: 042
     Dates: start: 20160609
  4. YONDELIS [Suspect]
     Active Substance: TRABECTEDIN
     Indication: EXTRA-OSSEOUS EWING^S SARCOMA METASTATIC
     Dosage: OVER 24-HOUR INFUSION, CYCLE 1-3
     Route: 042
     Dates: start: 20151221
  5. YONDELIS [Suspect]
     Active Substance: TRABECTEDIN
     Indication: PRIMITIVE NEUROECTODERMAL TUMOUR
     Dosage: CYCLE 4, 5
     Route: 042
     Dates: start: 20160418
  6. YONDELIS [Suspect]
     Active Substance: TRABECTEDIN
     Indication: EXTRA-OSSEOUS EWING^S SARCOMA METASTATIC
     Dosage: CYCLE 4, 5
     Route: 042
     Dates: start: 20160418
  7. DEXAMETHASONE. [Concomitant]
     Active Substance: DEXAMETHASONE
     Indication: ANTIEMETIC SUPPORTIVE CARE
     Dosage: CYCLES 1-6
     Route: 065
  8. YONDELIS [Suspect]
     Active Substance: TRABECTEDIN
     Indication: PRIMITIVE NEUROECTODERMAL TUMOUR
     Route: 042
     Dates: start: 201303
  9. YONDELIS [Suspect]
     Active Substance: TRABECTEDIN
     Indication: PRIMITIVE NEUROECTODERMAL TUMOUR
     Dosage: OVER 24-HOUR INFUSION, CYCLE 1-3
     Route: 042
     Dates: start: 20151221
  10. YONDELIS [Suspect]
     Active Substance: TRABECTEDIN
     Indication: EXTRA-OSSEOUS EWING^S SARCOMA METASTATIC
     Dosage: OVER 24-HOUR INFUSION, CYCLE 1-3
     Route: 042
     Dates: start: 20160118
  11. YONDELIS [Suspect]
     Active Substance: TRABECTEDIN
     Indication: EXTRA-OSSEOUS EWING^S SARCOMA METASTATIC
     Route: 042
     Dates: start: 201303
  12. YONDELIS [Suspect]
     Active Substance: TRABECTEDIN
     Indication: EXTRA-OSSEOUS EWING^S SARCOMA METASTATIC
     Route: 042
     Dates: start: 20160222
  13. YONDELIS [Suspect]
     Active Substance: TRABECTEDIN
     Indication: EXTRA-OSSEOUS EWING^S SARCOMA METASTATIC
     Dosage: CYCLE 4, 5
     Route: 042
     Dates: start: 20160516
  14. YONDELIS [Suspect]
     Active Substance: TRABECTEDIN
     Indication: PRIMITIVE NEUROECTODERMAL TUMOUR
     Dosage: CYCLE 4, 5
     Route: 042
     Dates: start: 20160516
  15. YONDELIS [Suspect]
     Active Substance: TRABECTEDIN
     Indication: PRIMITIVE NEUROECTODERMAL TUMOUR
     Route: 042
     Dates: start: 20160222

REACTIONS (10)
  - Implant site ulcer [Recovered/Resolved]
  - Aspartate aminotransferase increased [Not Recovered/Not Resolved]
  - Haemoglobin decreased [Not Recovered/Not Resolved]
  - Platelet count decreased [Not Recovered/Not Resolved]
  - Neutrophil count decreased [Not Recovered/Not Resolved]
  - Acute kidney injury [Not Recovered/Not Resolved]
  - Extra-osseous Ewing^s sarcoma [Fatal]
  - White blood cell count decreased [Not Recovered/Not Resolved]
  - Alanine aminotransferase increased [Not Recovered/Not Resolved]
  - Gamma-glutamyltransferase increased [Not Recovered/Not Resolved]

NARRATIVE: CASE EVENT DATE: 20151224
